FAERS Safety Report 17862424 (Version 3)
Quarter: 2020Q2

REPORT INFORMATION
  Report Type: Report from Study
  Country: US (occurrence: US)
  Receive Date: 20200604
  Receipt Date: 20200617
  Transmission Date: 20200714
  Serious: Yes (Hospitalization)
  Sender: FDA-Public Use
  Company Number: US-CELGENEUS-USA-20200600750

PATIENT
  Age: 67 Year
  Sex: Male
  Weight: 98.52 kg

DRUGS (2)
  1. VIDAZA [Suspect]
     Active Substance: AZACITIDINE
     Indication: MYELODYSPLASTIC SYNDROME
     Dosage: 170 MILLIGRAM
     Route: 041
     Dates: start: 20190725, end: 20190826
  2. VIDAZA [Suspect]
     Active Substance: AZACITIDINE
     Dosage: 85 MILLIGRAM
     Route: 041
     Dates: start: 20190827

REACTIONS (1)
  - Clostridial sepsis [Recovered/Resolved]

NARRATIVE: CASE EVENT DATE: 20190921
